FAERS Safety Report 6628388-1 (Version None)
Quarter: 2010Q1

REPORT INFORMATION
  Report Type: 
  Country: None (occurrence: None)
  Receive Date: 20100311
  Receipt Date: 20100301
  Transmission Date: 20100710
  Serious: Yes (Other)
  Sender: FDA-Public Use
  Company Number: US-ROCHE-688914

PATIENT

DRUGS (2)
  1. BEVACIZUMAB [Suspect]
     Indication: OVARIAN EPITHELIAL CANCER
     Dosage: LAST ADMINISTRATION DATE: 18 AUGUST 2008, CYCLE: 28 DAYS
     Route: 042
     Dates: start: 20070608
  2. SORAFENIB [Suspect]
     Indication: OVARIAN EPITHELIAL CANCER
     Dosage: LAST ADMINISTRATION: 02 SEPT 2008, FREQUENCY: GIVEN ON DAYS 1 TO 5 OF EACH WEEK, CYCLE: 28 DAYS
     Route: 048
     Dates: start: 20070608

REACTIONS (1)
  - PROCTITIS [None]
